FAERS Safety Report 6043190-X (Version None)
Quarter: 2009Q1

REPORT INFORMATION
  Report Type: 
  Country: None (occurrence: None)
  Receive Date: 20090119
  Receipt Date: 20090105
  Transmission Date: 20090719
  Serious: Yes (Disabling, Other)
  Sender: FDA-Public Use
  Company Number: GB-ELI_LILLY_AND_COMPANY-GB200811001480

PATIENT
  Sex: Male
  Weight: 114.1 kg

DRUGS (9)
  1. BYETTA [Suspect]
     Indication: DIABETES MELLITUS
     Dosage: 5 UG, 2/D
     Route: 058
  2. INSULIN [Concomitant]
     Dosage: 160 IU, UNKNOWN
     Route: 065
  3. INSULIN [Concomitant]
     Dosage: UNK, UNKNOWN
     Route: 065
  4. METFORMIN [Concomitant]
     Dosage: 850 UNK, 3/D
     Route: 048
  5. RAMIPRIL [Concomitant]
     Dosage: 10 MG, DAILY (1/D)
     Route: 048
  6. AMLODIPINE                         /00972402/ [Concomitant]
     Dosage: 10 MG, DAILY (1/D)
     Route: 048
  7. ROSUVASTATIN CALCIUM [Concomitant]
     Dosage: 10 MG, DAILY (1/D)
     Route: 048
  8. GABAPENTIN [Concomitant]
     Dosage: UNK, UNKNOWN
     Route: 065
  9. ASPIRIN [Concomitant]
     Dosage: 75 MG, UNKNOWN
     Route: 065

REACTIONS (5)
  - ABDOMINAL PAIN [None]
  - GASTROINTESTINAL HAEMORRHAGE [None]
  - NAUSEA [None]
  - RECTAL HAEMORRHAGE [None]
  - VOMITING [None]
